FAERS Safety Report 9700268 (Version 1)
Quarter: 2013Q4

REPORT INFORMATION
  Report Type: Spontaneous
  Country: US (occurrence: US)
  Receive Date: 20131121
  Receipt Date: 20131121
  Transmission Date: 20140711
  Serious: Yes (Other)
  Sender: FDA-Public Use
  Company Number: US-ASTRAZENECA-2013SE84778

PATIENT
  Age: 20 Year
  Sex: Female

DRUGS (3)
  1. SEROQUEL XR [Suspect]
     Route: 048
     Dates: start: 201311, end: 201311
  2. DEPAKOTE [Concomitant]
  3. CITALOPRAM [Concomitant]

REACTIONS (7)
  - Dystonia [Unknown]
  - Anxiety [Unknown]
  - Eye movement disorder [Unknown]
  - Psychotic disorder [Unknown]
  - Agitation [Unknown]
  - Crying [Unknown]
  - Writer^s cramp [Unknown]
